FAERS Safety Report 4438385-2 (Version None)
Quarter: 2004Q3

REPORT INFORMATION
  Report Type: 
  Country: None (occurrence: None)
  Receive Date: 20040831
  Receipt Date: 20040730
  Transmission Date: 20050211
  Serious: No
  Sender: FDA-Public Use
  Company Number: US-GLAXOSMITHKLINE-A0520485A

PATIENT
  Age: 46 Year
  Sex: Female
  Weight: 74.5 kg

DRUGS (7)
  1. WELLBUTRIN XL [Suspect]
     Indication: DEPRESSION
     Dosage: 300MG PER DAY
     Route: 048
     Dates: start: 20040701
  2. DIOVAN [Concomitant]
  3. ACIPHEX [Concomitant]
  4. ZYRTEC [Concomitant]
  5. SINGULAIR [Concomitant]
  6. ZOMIG [Concomitant]
  7. VIOXX [Concomitant]

REACTIONS (8)
  - FATIGUE [None]
  - MIGRAINE [None]
  - MUSCLE TWITCHING [None]
  - NIGHTMARE [None]
  - PALPITATIONS [None]
  - PARAESTHESIA [None]
  - SENSATION OF HEAVINESS [None]
  - TREMOR [None]
